FAERS Safety Report 7630660-3 (Version None)
Quarter: 2011Q3

REPORT INFORMATION
  Report Type: 
  Country: None (occurrence: None)
  Receive Date: 20110722
  Receipt Date: 20110718
  Transmission Date: 20111222
  Serious: Yes (Death, Life-Threatening, Hospitalization)
  Sender: FDA-Public Use
  Company Number: FI-ASTRAZENECA-2011SE34658

PATIENT
  Age: 17488 Day
  Sex: Male

DRUGS (7)
  1. ZYPREXA [Suspect]
     Route: 048
  2. SEROQUEL [Suspect]
     Dosage: 200 MG, 200 MG AND 300 MG
     Route: 048
     Dates: end: 20101022
  3. OPAMOX [Concomitant]
     Dosage: 30 + 30 + 15
     Route: 048
  4. ZOLPIDEM TARTRATE [Concomitant]
     Route: 048
  5. CITALOPRAM HYDROBROMIDE [Concomitant]
     Route: 048
  6. PERPHENAZINE [Suspect]
     Route: 048
  7. LORAZEPAM [Concomitant]
     Dosage: 0.5 + 0.5 + 1
     Route: 048

REACTIONS (3)
  - RESPIRATORY FAILURE [None]
  - MAJOR DEPRESSION [None]
  - NEUROLEPTIC MALIGNANT SYNDROME [None]
